FAERS Safety Report 11199997 (Version 1)
Quarter: 2015Q2

REPORT INFORMATION
  Report Type: Spontaneous
  Country: US (occurrence: None)
  Receive Date: 20150617
  Receipt Date: 20150617
  Transmission Date: 20150821
  Serious: Yes (Other)
  Sender: FDA-Public Use
  Company Number: None

PATIENT
  Age: 72 Year
  Sex: Female

DRUGS (1)
  1. CAPECITABINE 500 MG TEVA PHARMACEUTICALS USA INC [Suspect]
     Active Substance: CAPECITABINE
     Indication: COLORECTAL CANCER
     Dosage: 5 TABLETS (3 QAM, 2 QPM) QD PO
     Route: 048
     Dates: start: 20140911, end: 20150602

REACTIONS (2)
  - Erythema [None]
  - Drug ineffective [None]

NARRATIVE: CASE EVENT DATE: 20150602
